FAERS Safety Report 14968559 (Version 1)
Quarter: 2018Q2

REPORT INFORMATION
  Report Type: Report from Study
  Country: ES (occurrence: ES)
  Receive Date: 20180604
  Receipt Date: 20180604
  Transmission Date: 20180711
  Serious: Yes (Life-Threatening, Other)
  Sender: FDA-Public Use
  Company Number: ES-ACCORD-067628

PATIENT

DRUGS (2)
  1. SIROLIMUS. [Suspect]
     Active Substance: SIROLIMUS
     Indication: SOFT TISSUE SARCOMA
     Dosage: STARTING ON DAY 2 OF CYCLE 1
     Route: 048
  2. GEMCITABINE/GEMCITABINE HYDROCHLORIDE [Suspect]
     Active Substance: GEMCITABINE\GEMCITABINE HYDROCHLORIDE
     Indication: SOFT TISSUE SARCOMA
     Dosage: ON DAYS 1 AND 8 EVERY 3 WEEKS (CYCLICAL)
     Route: 042

REACTIONS (3)
  - Large intestinal obstruction [Unknown]
  - Large intestine perforation [Unknown]
  - Off label use [Unknown]
